FAERS Safety Report 11601369 (Version 1)
Quarter: 2015Q4

REPORT INFORMATION
  Report Type: Spontaneous
  Country: US (occurrence: US)
  Receive Date: 20151006
  Receipt Date: 20151006
  Transmission Date: 20160304
  Serious: No
  Sender: FDA-Public Use
  Company Number: US-AMGEN-USASP2015020971

PATIENT
  Age: 53 Year
  Sex: Female
  Weight: 71.2 kg

DRUGS (5)
  1. PROLIA [Suspect]
     Active Substance: DENOSUMAB
     Indication: OSTEOPOROSIS
     Dosage: 60 MG, Q6MO
     Route: 058
     Dates: start: 20140915, end: 20150305
  2. CALCIUM/VITAMIN D                  /01204201/ [Concomitant]
     Indication: OSTEOPOROSIS
     Dosage: 1200 UNK, QD
     Route: 048
     Dates: start: 20131218
  3. BIOTIN [Concomitant]
     Active Substance: BIOTIN
     Dosage: 1000 MUG, QD
     Route: 048
     Dates: start: 20130212
  4. VOLTAREN [Concomitant]
     Active Substance: DICLOFENAC SODIUM
     Indication: TENDONITIS
     Dosage: UNK UNK, BID
     Route: 061
     Dates: start: 201308
  5. PREVACID [Concomitant]
     Active Substance: LANSOPRAZOLE
     Indication: GASTROOESOPHAGEAL REFLUX DISEASE
     Dosage: 15 MG, QD
     Route: 048
     Dates: start: 201308

REACTIONS (6)
  - Metatarsalgia [Unknown]
  - Hypersensitivity [Unknown]
  - Pain in extremity [Unknown]
  - Rash [Unknown]
  - Swelling [Not Recovered/Not Resolved]
  - Oedema peripheral [Unknown]

NARRATIVE: CASE EVENT DATE: 2014
